FAERS Safety Report 24307748 (Version 4)
Quarter: 2025Q2

REPORT INFORMATION
  Report Type: Spontaneous
  Country: NL (occurrence: NL)
  Receive Date: 20240911
  Receipt Date: 20250401
  Transmission Date: 20250717
  Serious: Yes (Other)
  Sender: ORGANON
  Company Number: NL-TEVA-2019-NL-1035151

PATIENT
  Age: 68 Year
  Sex: Male

DRUGS (6)
  1. SIMVASTATIN [Interacting]
     Active Substance: SIMVASTATIN
     Route: 065
  2. IMATINIB MESYLATE [Interacting]
     Active Substance: IMATINIB MESYLATE
     Indication: Chronic myeloid leukaemia (in remission)
  3. IMATINIB MESYLATE [Interacting]
     Active Substance: IMATINIB MESYLATE
  4. ALFACALCIDOL [Interacting]
     Active Substance: ALFACALCIDOL
  5. CLOPIDOGREL [Interacting]
     Active Substance: CLOPIDOGREL BISULFATE
  6. BUMETANIDE [Concomitant]
     Active Substance: BUMETANIDE

REACTIONS (3)
  - Organising pneumonia [Recovered/Resolved]
  - Interstitial lung disease [Recovered/Resolved]
  - Drug interaction [Recovered/Resolved]
